FAERS Safety Report 8158467-1 (Version None)
Quarter: 2012Q1

REPORT INFORMATION
  Report Type: 
  Country: None (occurrence: None)
  Receive Date: 20120223
  Receipt Date: 20120215
  Transmission Date: 20120608
  Serious: Yes (Other)
  Sender: FDA-Public Use
  Company Number: JP-JNJFOC-20110902684

PATIENT
  Sex: Female

DRUGS (6)
  1. FENTANYL-100 [Suspect]
     Indication: PROCEDURAL PAIN
     Route: 062
     Dates: start: 20050101, end: 20111027
  2. FENTANYL CITRATE [Suspect]
     Indication: GENERAL ANAESTHESIA
     Route: 042
     Dates: start: 20111025, end: 20111025
  3. METOCLOPRAMIDE [Suspect]
     Indication: UTERINE CONTRACTIONS DURING PREGNANCY
     Route: 048
  4. FENTANYL-100 [Suspect]
     Indication: PAIN
     Route: 062
     Dates: start: 20050101, end: 20111027
  5. ULTIVA [Suspect]
     Indication: GENERAL ANAESTHESIA
     Route: 042
     Dates: start: 20111025, end: 20111025
  6. MORPHINE HCL ELIXIR [Suspect]
     Indication: UTERINE CONTRACTIONS DURING PREGNANCY
     Route: 065
     Dates: start: 20050101

REACTIONS (4)
  - MATERNAL EXPOSURE DURING PREGNANCY [None]
  - PREMATURE LABOUR [None]
  - DRUG PRESCRIBING ERROR [None]
  - OFF LABEL USE [None]
